FAERS Safety Report 11796913 (Version 3)
Quarter: 2016Q3

REPORT INFORMATION
  Report Type: Report from Study
  Country: JP (occurrence: JP)
  Receive Date: 20151203
  Receipt Date: 20160914
  Transmission Date: 20161109
  Serious: Yes (Other)
  Sender: FDA-Public Use
  Company Number: JP-ASTELLAS-2010JP004644

PATIENT
  Age: 19 Year
  Sex: Female

DRUGS (39)
  1. TACROLIMUS. [Suspect]
     Active Substance: TACROLIMUS
     Route: 048
     Dates: start: 20100121, end: 20100429
  2. PREDNISOLONE. [Concomitant]
     Active Substance: PREDNISOLONE
     Route: 048
     Dates: start: 20130611, end: 20131007
  3. PURSENNID [Concomitant]
     Active Substance: SENNOSIDES A AND B
     Indication: CONSTIPATION
     Route: 048
  4. DORNER [Concomitant]
     Active Substance: BERAPROST SODIUM
     Indication: SYSTEMIC LUPUS ERYTHEMATOSUS
     Route: 048
     Dates: end: 20091221
  5. PREDNISOLONE. [Concomitant]
     Active Substance: PREDNISOLONE
     Route: 048
     Dates: start: 20100430, end: 20100623
  6. PREDNISOLONE. [Concomitant]
     Active Substance: PREDNISOLONE
     Route: 048
     Dates: start: 20130121, end: 20130311
  7. PREDNISOLONE. [Concomitant]
     Active Substance: PREDNISOLONE
     Route: 048
     Dates: start: 20131008, end: 20131111
  8. PREDNISOLONE. [Concomitant]
     Active Substance: PREDNISOLONE
     Route: 048
     Dates: start: 20140416
  9. ALFAROL [Concomitant]
     Active Substance: ALFACALCIDOL
     Indication: PROPHYLAXIS
     Route: 048
  10. BONALON [Concomitant]
     Active Substance: ALENDRONATE SODIUM
     Indication: PROPHYLAXIS
     Route: 048
     Dates: end: 20090315
  11. HYPEN                              /00613801/ [Concomitant]
     Active Substance: ETODOLAC
     Indication: HEADACHE
     Route: 048
     Dates: start: 20090602, end: 20090821
  12. ANPLAG [Concomitant]
     Active Substance: SARPOGRELATE
     Indication: SKIN ULCER
     Route: 048
     Dates: start: 20120119
  13. TACROLIMUS. [Suspect]
     Active Substance: TACROLIMUS
     Route: 048
     Dates: start: 20110609, end: 20140106
  14. TACROLIMUS. [Suspect]
     Active Substance: TACROLIMUS
     Route: 048
     Dates: start: 20140416, end: 20140722
  15. PREDNISOLONE. [Concomitant]
     Active Substance: PREDNISOLONE
     Route: 048
     Dates: start: 20090807, end: 20100429
  16. PREDNISOLONE. [Concomitant]
     Active Substance: PREDNISOLONE
     Route: 048
     Dates: start: 20110331, end: 20110427
  17. TACROLIMUS. [Suspect]
     Active Substance: TACROLIMUS
     Route: 048
     Dates: start: 20101216, end: 20110608
  18. TACROLIMUS. [Suspect]
     Active Substance: TACROLIMUS
     Route: 048
     Dates: start: 20140107, end: 20140318
  19. PREDNISOLONE. [Concomitant]
     Active Substance: PREDNISOLONE
     Route: 048
     Dates: start: 20110120, end: 20110223
  20. PREDNISOLONE. [Concomitant]
     Active Substance: PREDNISOLONE
     Route: 048
     Dates: start: 20110224, end: 20110330
  21. TACROLIMUS. [Suspect]
     Active Substance: TACROLIMUS
     Dosage: 2.0 MG, ONCE DAILY
     Route: 048
     Dates: start: 20140319, end: 20140415
  22. PREDNISOLONE. [Concomitant]
     Active Substance: PREDNISOLONE
     Indication: LUPUS NEPHRITIS
     Route: 048
     Dates: end: 20090701
  23. PREDNISOLONE. [Concomitant]
     Active Substance: PREDNISOLONE
     Route: 048
     Dates: start: 20131112, end: 20140415
  24. TOCOPHERYL NICOTINATE [Concomitant]
     Active Substance: TOCOPHERYL NICOTINATE, D-.ALPHA.
     Indication: SYSTEMIC LUPUS ERYTHEMATOSUS
     Route: 048
  25. TACROLIMUS. [Suspect]
     Active Substance: TACROLIMUS
     Indication: LUPUS NEPHRITIS
     Route: 048
     Dates: start: 20090202, end: 20090222
  26. TACROLIMUS. [Suspect]
     Active Substance: TACROLIMUS
     Route: 048
     Dates: start: 20090223, end: 20100120
  27. PREDNISOLONE. [Concomitant]
     Active Substance: PREDNISOLONE
     Route: 048
     Dates: start: 20090702, end: 20090806
  28. PREDNISOLONE. [Concomitant]
     Active Substance: PREDNISOLONE
     Route: 048
     Dates: start: 20100624, end: 20100908
  29. PREDNISOLONE. [Concomitant]
     Active Substance: PREDNISOLONE
     Route: 048
     Dates: start: 20110428, end: 20121014
  30. PURSENNID [Concomitant]
     Active Substance: SENNOSIDES A AND B
     Route: 048
  31. FERROMIA                           /00023520/ [Concomitant]
     Indication: IRON DEFICIENCY
     Route: 048
     Dates: start: 20100624, end: 20101215
  32. WARFARIN [Concomitant]
     Active Substance: WARFARIN
     Indication: SKIN ULCER
     Route: 048
     Dates: start: 20120119, end: 20140723
  33. TACROLIMUS. [Suspect]
     Active Substance: TACROLIMUS
     Route: 048
     Dates: start: 20100430, end: 20101215
  34. PREDNISOLONE. [Concomitant]
     Active Substance: PREDNISOLONE
     Route: 048
     Dates: start: 20100909, end: 20110119
  35. PREDNISOLONE. [Concomitant]
     Active Substance: PREDNISOLONE
     Route: 048
     Dates: start: 20121015, end: 20130120
  36. TAKEPRON [Concomitant]
     Active Substance: LANSOPRAZOLE
     Indication: PROPHYLAXIS
     Route: 048
  37. TACROLIMUS. [Suspect]
     Active Substance: TACROLIMUS
     Route: 048
     Dates: start: 20141202
  38. PREDNISOLONE. [Concomitant]
     Active Substance: PREDNISOLONE
     Route: 048
     Dates: start: 20130312, end: 20130610
  39. ANPLAG [Concomitant]
     Active Substance: SARPOGRELATE
     Route: 048

REACTIONS (5)
  - Generalised oedema [Recovered/Resolved]
  - Intentional product use issue [Unknown]
  - Headache [Recovering/Resolving]
  - Iron deficiency [Recovered/Resolved]
  - Constipation [Recovering/Resolving]

NARRATIVE: CASE EVENT DATE: 200905
